FAERS Safety Report 19530314 (Version 1)
Quarter: 2021Q3

REPORT INFORMATION
  Report Type: Spontaneous
  Country: GB (occurrence: GB)
  Receive Date: 20210713
  Receipt Date: 20210713
  Transmission Date: 20211014
  Serious: Yes (Disabling)
  Sender: FDA-Public Use
  Company Number: GB-TEVA-2021-GB-1930788

PATIENT
  Age: 57 Year
  Sex: Male
  Weight: 100 kg

DRUGS (12)
  1. LOSARTAN. [Concomitant]
     Active Substance: LOSARTAN
     Indication: ILL-DEFINED DISORDER
     Dosage: 1 DOSAGE FORMS DAILY;
     Dates: start: 20210305
  2. SPIRONOLACTONE. [Suspect]
     Active Substance: SPIRONOLACTONE
     Dosage: 1 DOSAGE FORMS DAILY;
     Dates: start: 20210514
  3. AMLODIPINE [Concomitant]
     Active Substance: AMLODIPINE BESYLATE
     Indication: ILL-DEFINED DISORDER
     Dosage: 1 DOSAGE FORMS DAILY;
     Dates: start: 20210305
  4. ATORVASTATIN [Concomitant]
     Active Substance: ATORVASTATIN
     Indication: ILL-DEFINED DISORDER
     Dosage: 1 DOSAGE FORMS DAILY;
     Dates: start: 20210305
  5. VENTOLIN [Concomitant]
     Active Substance: ALBUTEROL SULFATE
     Indication: ILL-DEFINED DISORDER
     Dosage: INHALE 1 DOSE AS NEEDED, 1 DOSAGE FORMS
     Route: 055
     Dates: start: 20210305
  6. CLOPIDOGREL [Concomitant]
     Active Substance: CLOPIDOGREL BISULFATE
     Indication: ILL-DEFINED DISORDER
     Dosage: 1 DOSAGE FORMS DAILY;
     Dates: start: 20210305
  7. GLICLAZIDE [Concomitant]
     Active Substance: GLICLAZIDE
     Indication: ILL-DEFINED DISORDER
     Dosage: 1 DOSAGE FORMS DAILY;  EVERY MORNING
     Dates: start: 20210305
  8. SPIRONOLACTONE. [Suspect]
     Active Substance: SPIRONOLACTONE
     Indication: ILL-DEFINED DISORDER
     Dosage: 25 MG
     Dates: start: 20210701
  9. ALLOPURINOL. [Concomitant]
     Active Substance: ALLOPURINOL
     Indication: ILL-DEFINED DISORDER
     Dosage: 400 MILLIGRAM DAILY; IN THE MORNING
     Dates: start: 20210305
  10. HYDROCORTISONE. [Concomitant]
     Active Substance: HYDROCORTISONE
     Indication: ILL-DEFINED DISORDER
     Dosage: SUCK 4 TIMES/DAY
     Dates: start: 20210518, end: 20210523
  11. TRELEGY ELLIPTA [Concomitant]
     Active Substance: FLUTICASONE FUROATE\UMECLIDINIUM BROMIDE\VILANTEROL TRIFENATATE
     Indication: ILL-DEFINED DISORDER
     Dosage: 1 DOSAGE FORMS DAILY; INHALE
     Dates: start: 20210305
  12. HYDRALAZINE [Concomitant]
     Active Substance: HYDRALAZINE HYDROCHLORIDE
     Indication: ILL-DEFINED DISORDER
     Dosage: 2 DOSAGE FORMS DAILY;
     Dates: start: 20210618

REACTIONS (1)
  - Joint swelling [Recovered/Resolved]

NARRATIVE: CASE EVENT DATE: 20210701
